FAERS Safety Report 9931927 (Version 1)
Quarter: 2014Q1

REPORT INFORMATION
  Report Type: Spontaneous
  Country: US (occurrence: None)
  Receive Date: 20140226
  Receipt Date: 20140226
  Transmission Date: 20141002
  Serious: Yes (Hospitalization, Other)
  Sender: FDA-Public Use
  Company Number: AMAG201400016

PATIENT
  Age: 83 Year
  Sex: Male
  Weight: 72.1 kg

DRUGS (1)
  1. FERAHEME (FERUMOXYTOL) INJECTION, 510MG [Suspect]
     Indication: IRON DEFICIENCY ANAEMIA
     Dosage: 1 ML, (30 MG) SINGLE, IV PUSH
     Route: 042
     Dates: start: 20131230, end: 20131230

REACTIONS (6)
  - Myocardial infarction [None]
  - Unresponsive to stimuli [None]
  - Hypotension [None]
  - Pulse pressure decreased [None]
  - Clonus [None]
  - Hot flush [None]
